FAERS Safety Report 8219864-9 (Version None)
Quarter: 2012Q1

REPORT INFORMATION
  Report Type: 
  Country: None (occurrence: None)
  Receive Date: 20120319
  Receipt Date: 20120313
  Transmission Date: 20120608
  Serious: Yes (Death)
  Sender: FDA-Public Use
  Company Number: US-ASTRAZENECA-2012SE00952

PATIENT
  Age: 82 Year
  Sex: Male
  Weight: 92.1 kg

DRUGS (2)
  1. BRILINTA [Suspect]
     Route: 048
  2. BRILINTA [Suspect]
     Route: 048

REACTIONS (2)
  - DEATH [None]
  - DYSPNOEA [None]
